FAERS Safety Report 13862633 (Version 2)
Quarter: 2017Q4

REPORT INFORMATION
  Report Type: Spontaneous
  Country: US (occurrence: US)
  Receive Date: 20170814
  Receipt Date: 20171007
  Transmission Date: 20180320
  Serious: Yes (Other)
  Sender: FDA-Public Use
  Company Number: US-ROCHE-1975933

PATIENT
  Sex: Female

DRUGS (9)
  1. ZINBRYTA [Suspect]
     Active Substance: DACLIZUMAB
     Indication: MULTIPLE SCLEROSIS
     Dosage: SOLN FOR INJECT IN PRE-FILLED SYRINGE
     Route: 058
     Dates: start: 20170524
  2. MUCINEX D [Concomitant]
     Active Substance: GUAIFENESIN\PSEUDOEPHEDRINE HYDROCHLORIDE
  3. BACLOFEN. [Concomitant]
     Active Substance: BACLOFEN
     Route: 048
     Dates: start: 20161107
  4. RITUXAN [Suspect]
     Active Substance: RITUXIMAB
     Indication: MULTIPLE SCLEROSIS
     Dosage: 500 MG/50 ML IV SOLUTION
     Route: 042
     Dates: start: 201512, end: 201602
  5. AMPYRA [Concomitant]
     Active Substance: DALFAMPRIDINE
     Route: 048
  6. GABAPENTIN. [Concomitant]
     Active Substance: GABAPENTIN
     Route: 065
  7. VITAMIN D3 [Concomitant]
     Active Substance: CHOLECALCIFEROL
  8. FLUTICASONE PROPIONATE. [Concomitant]
     Active Substance: FLUTICASONE PROPIONATE
     Dosage: NASAL SPRAY SUSPENSION
     Route: 065
     Dates: start: 20150608
  9. OXYBUTYNIN CHLORIDE. [Concomitant]
     Active Substance: OXYBUTYNIN CHLORIDE

REACTIONS (5)
  - Neuralgia [Unknown]
  - Hemiparesis [Unknown]
  - Intentional product use issue [Unknown]
  - Off label use [Unknown]
  - Gait disturbance [Unknown]
